FAERS Safety Report 6839513-1 (Version None)
Quarter: 2010Q3

REPORT INFORMATION
  Report Type: 
  Country: None (occurrence: None)
  Receive Date: 20100714
  Receipt Date: 20091111
  Transmission Date: 20110219
  Serious: No
  Sender: FDA-Public Use
  Company Number: A0816515A

PATIENT
  Age: 69 Year
  Sex: Male

DRUGS (6)
  1. FLOVENT [Suspect]
     Indication: EMPHYSEMA
     Dosage: 2PUFF TWICE PER DAY
     Route: 055
  2. SEREVENT [Suspect]
     Indication: EMPHYSEMA
     Dosage: 1PUFF TWICE PER DAY
     Route: 055
  3. OXYGEN [Concomitant]
  4. SPIRIVA [Concomitant]
  5. CLINICAL STUDY MEDICATION [Concomitant]
  6. LYRICA [Concomitant]

REACTIONS (3)
  - DRUG INEFFECTIVE [None]
  - DYSPNOEA [None]
  - OXYGEN SATURATION ABNORMAL [None]
